FAERS Safety Report 4985304-6 (Version None)
Quarter: 2006Q2

REPORT INFORMATION
  Report Type: 
  Country: None (occurrence: None)
  Receive Date: 20060427
  Receipt Date: 20050315
  Transmission Date: 20061013
  Serious: Yes (Other)
  Sender: FDA-Public Use
  Company Number: US-MERCK-0503USA03152

PATIENT
  Age: 59 Year
  Sex: Male
  Weight: 68 kg

DRUGS (3)
  1. VIOXX [Suspect]
     Indication: ARTHRITIS
     Route: 048
     Dates: start: 20000101, end: 20030101
  2. VALIUM [Concomitant]
     Route: 065
  3. VICODIN [Concomitant]
     Route: 065

REACTIONS (20)
  - CARDIAC FAILURE [None]
  - CEREBROVASCULAR ACCIDENT [None]
  - CHEST PAIN [None]
  - CHOLELITHIASIS [None]
  - CYST [None]
  - DYSPNOEA [None]
  - FURUNCLE [None]
  - GASTROINTESTINAL DISORDER [None]
  - HEPATIC CYST [None]
  - HEPATOCELLULAR DAMAGE [None]
  - MYOCARDIAL INFARCTION [None]
  - NEPHROLITHIASIS [None]
  - POLYTRAUMATISM [None]
  - PROSTATE EXAMINATION ABNORMAL [None]
  - RENAL CYST [None]
  - RENAL DISORDER [None]
  - RENAL INJURY [None]
  - RENAL MASS [None]
  - THROMBOSIS [None]
  - ULCER [None]
